FAERS Safety Report 15172372 (Version 1)
Quarter: 2018Q3

REPORT INFORMATION
  Report Type: Spontaneous
  Country: ZA (occurrence: ZA)
  Receive Date: 20180720
  Receipt Date: 20180720
  Transmission Date: 20181010
  Serious: Yes (Hospitalization)
  Sender: FDA-Public Use
  Company Number: ZA-MERCK KGAA-2052473

PATIENT
  Age: 87 Year
  Sex: Female

DRUGS (8)
  1. DOPAQUEL [Suspect]
     Active Substance: QUETIAPINE
  2. NOVOTHYROX [Suspect]
     Active Substance: LEVOTHYROXINE SODIUM
     Indication: PRODUCT USED FOR UNKNOWN INDICATION
  3. SPIRACTIN (SPIRONOLACTONE) [Suspect]
     Active Substance: SPIRONOLACTONE
  4. ZYTOMIL [Suspect]
     Active Substance: ESCITALOPRAM OXALATE
  5. HALCION [Suspect]
     Active Substance: TRIAZOLAM
  6. VESICARE [Suspect]
     Active Substance: SOLIFENACIN SUCCINATE
  7. MACRODANTIN [Suspect]
     Active Substance: NITROFURANTOIN
  8. CARDUGEN [Suspect]
     Active Substance: DOXAZOSIN\DOXAZOSIN MESYLATE

REACTIONS (2)
  - Fall [None]
  - Dehydration [Unknown]

NARRATIVE: CASE EVENT DATE: 2018
